FAERS Safety Report 10261485 (Version 2)
Quarter: 2014Q2

REPORT INFORMATION
  Report Type: Spontaneous
  Country: US (occurrence: US)
  Receive Date: 20140626
  Receipt Date: 20140626
  Transmission Date: 20141212
  Serious: Yes (Other)
  Sender: FDA-Public Use
  Company Number: US-AMGEN-USASP2014046031

PATIENT
  Age: 51 Year
  Sex: Male

DRUGS (1)
  1. ENBREL [Suspect]
     Indication: ANKYLOSING SPONDYLITIS
     Dosage: 50 MG, QWK
     Route: 065
     Dates: start: 20140425

REACTIONS (5)
  - Haematuria [Not Recovered/Not Resolved]
  - Fatigue [Unknown]
  - Joint stiffness [Not Recovered/Not Resolved]
  - Stress [Not Recovered/Not Resolved]
  - Headache [Unknown]
